FAERS Safety Report 12939101 (Version 1)
Quarter: 2016Q4

REPORT INFORMATION
  Report Type: Spontaneous
  Country: US (occurrence: US)
  Receive Date: 20161115
  Receipt Date: 20161115
  Transmission Date: 20170207
  Serious: Yes (Other)
  Sender: FDA-Public Use
  Company Number: US-ROCHE-1849980

PATIENT
  Age: 76 Year
  Sex: Male

DRUGS (2)
  1. PREDNISONE. [Suspect]
     Active Substance: PREDNISONE
     Indication: TYPE III IMMUNE COMPLEX MEDIATED REACTION
     Route: 065
  2. RITUXIMAB [Suspect]
     Active Substance: RITUXIMAB
     Indication: TYPE III IMMUNE COMPLEX MEDIATED REACTION
     Route: 042

REACTIONS (2)
  - Pneumonia [Unknown]
  - Respiratory failure [Unknown]
